FAERS Safety Report 11832142 (Version 3)
Quarter: 2016Q3

REPORT INFORMATION
  Report Type: Spontaneous
  Country: IT (occurrence: IT)
  Receive Date: 20151214
  Receipt Date: 20160825
  Transmission Date: 20161109
  Serious: Yes (Other)
  Sender: FDA-Public Use
  Company Number: IT-PFIZER INC-2015444853

PATIENT
  Age: 22 Year
  Sex: Male
  Weight: 64 kg

DRUGS (5)
  1. PANTORC [Suspect]
     Active Substance: PANTOPRAZOLE SODIUM
     Dosage: 40 MG, DAILY
     Route: 048
     Dates: start: 20151011, end: 20151112
  2. MOTILIUM [Interacting]
     Active Substance: DOMPERIDONE
     Dosage: 30 ML, DAILY
     Route: 048
     Dates: start: 20151018, end: 20151112
  3. BACLOFENE MYLAN [Interacting]
     Active Substance: BACLOFEN
     Dosage: 45 MG, DAILY
     Route: 048
     Dates: start: 20151102, end: 20151112
  4. ABOUND [Concomitant]
     Dosage: UNK
  5. SOLMUCOL [Interacting]
     Active Substance: ACETYLCYSTEINE
     Dosage: 1200 MG, QD
     Route: 065
     Dates: start: 20151011, end: 20151112

REACTIONS (2)
  - Drug interaction [Recovering/Resolving]
  - Hepatocellular injury [Recovering/Resolving]

NARRATIVE: CASE EVENT DATE: 20151106
